FAERS Safety Report 16101270 (Version 1)
Quarter: 2019Q1

REPORT INFORMATION
  Report Type: Spontaneous
  Country: ES (occurrence: ES)
  Receive Date: 20190321
  Receipt Date: 20190321
  Transmission Date: 20190418
  Serious: Yes (Other)
  Sender: FDA-Public Use
  Company Number: ES-ASTRAZENECA-2019SE41476

PATIENT
  Age: 72 Year
  Sex: Male

DRUGS (7)
  1. SIMVASTATIN. [Concomitant]
     Active Substance: SIMVASTATIN
     Dates: start: 20180514
  2. UROLOSIN [Concomitant]
     Active Substance: TAMSULOSIN HYDROCHLORIDE
     Dates: start: 20180514
  3. AMLODIPINE [Concomitant]
     Active Substance: AMLODIPINE BESYLATE
     Dates: start: 20180514
  4. OMEPRAZOL [Suspect]
     Active Substance: OMEPRAZOLE
     Route: 048
     Dates: start: 20180514
  5. CILOSTAZOL. [Interacting]
     Active Substance: CILOSTAZOL
     Indication: INTERMITTENT CLAUDICATION
     Dosage: 1/DAILY (1/2 BEFORE LUNCH AND 1/2 BEFORE DINNER)
     Route: 048
     Dates: start: 20180917
  6. ACOVIL [Concomitant]
     Active Substance: RAMIPRIL
     Dates: start: 20180514
  7. ACETYLSALICYLIC ACID [Concomitant]
     Active Substance: ASPIRIN
     Dates: start: 20180514

REACTIONS (5)
  - Angina pectoris [Recovering/Resolving]
  - Tachycardia [Recovering/Resolving]
  - Hypertension [Recovering/Resolving]
  - Dyspnoea [Recovering/Resolving]
  - Erythema [Recovering/Resolving]

NARRATIVE: CASE EVENT DATE: 20190201
